FAERS Safety Report 5000154-2 (Version None)
Quarter: 2006Q2

REPORT INFORMATION
  Report Type: 
  Country: None (occurrence: None)
  Receive Date: 20060508
  Receipt Date: 20060427
  Transmission Date: 20061013
  Serious: Yes (Hospitalization)
  Sender: FDA-Public Use
  Company Number: 200610141

PATIENT
  Age: 84 Year
  Sex: Female
  Weight: 85 kg

DRUGS (11)
  1. REDIMUNE (IMMUNOGLOBULIN HUMAN NORMAL) (ZLB BEHRING) [Suspect]
     Indication: IDIOPATHIC THROMBOCYTOPENIC PURPURA
     Dosage: SEE IMAGE
     Route: 042
     Dates: start: 20060408, end: 20060411
  2. REDIMUNE (IMMUNOGLOBULIN HUMAN NORMAL) (ZLB BEHRING) [Suspect]
     Indication: IDIOPATHIC THROMBOCYTOPENIC PURPURA
     Dosage: SEE IMAGE
     Route: 042
     Dates: start: 20060408, end: 20060411
  3. REDIMUNE (IMMUNOGLOBULIN HUMAN NORMAL) (ZLB BEHRING) [Suspect]
     Indication: IDIOPATHIC THROMBOCYTOPENIC PURPURA
     Dosage: SEE IMAGE
     Route: 042
     Dates: start: 20060408, end: 20060411
  4. REDIMUNE (IMMUNOGLOBULIN HUMAN NORMAL) (ZLB BEHRING) [Suspect]
  5. REDIMUNE (IMMUNOGLOBULIN HUMAN NORMAL) (ZLB BEHRING) [Suspect]
  6. BELOC ZOK [Concomitant]
  7. TRIATEC [Concomitant]
  8. DIGOXIN [Concomitant]
  9. NITRODERM [Concomitant]
  10. LASIX [Concomitant]
  11. PREDNISONE TAB [Concomitant]

REACTIONS (9)
  - ANURIA [None]
  - BLOOD PRESSURE INCREASED [None]
  - CARDIAC FAILURE [None]
  - CHEST DISCOMFORT [None]
  - DIALYSIS [None]
  - FLUID OVERLOAD [None]
  - HYPERTONIA [None]
  - METABOLIC ACIDOSIS [None]
  - WEIGHT INCREASED [None]
